FAERS Safety Report 10432815 (Version 1)
Quarter: 2014Q3

REPORT INFORMATION
  Report Type: Spontaneous
  Country: US (occurrence: None)
  Receive Date: 20140904
  Receipt Date: 20140904
  Transmission Date: 20150326
  Serious: Yes (Disabling, Other)
  Sender: FDA-Public Use
  Company Number: None

PATIENT
  Age: 50 Year
  Sex: Male
  Weight: 81.65 kg

DRUGS (3)
  1. BUPROPION HCL [Suspect]
     Active Substance: BUPROPION HYDROCHLORIDE
     Indication: DYSTHYMIC DISORDER
     Route: 048
     Dates: start: 201403
  2. BUPROPION HCL [Suspect]
     Active Substance: BUPROPION HYDROCHLORIDE
     Route: 048
     Dates: start: 201403
  3. BUPROPION HCL [Suspect]
     Active Substance: BUPROPION HYDROCHLORIDE
     Route: 048

REACTIONS (10)
  - Drug effect decreased [None]
  - Vision blurred [None]
  - Anxiety [None]
  - Headache [None]
  - Nausea [None]
  - Tinnitus [None]
  - Tremor [None]
  - Product quality issue [None]
  - Product substitution issue [None]
  - Vertigo [None]
